FAERS Safety Report 7674431-0 (Version None)
Quarter: 2011Q3

REPORT INFORMATION
  Report Type: 
  Country: None (occurrence: None)
  Receive Date: 20110810
  Receipt Date: 20110803
  Transmission Date: 20111222
  Serious: Yes (Other)
  Sender: FDA-Public Use
  Company Number: FR-TEVA-295083ISR

PATIENT
  Sex: Female

DRUGS (1)
  1. ETHINYL ESTRADIOL AND LEVONORGESTREL [Suspect]
     Dosage: 0.1 MG/0.02 MG
     Route: 048
     Dates: start: 20110703, end: 20110717

REACTIONS (1)
  - DERMATITIS ACNEIFORM [None]
